FAERS Safety Report 8820739 (Version 1)
Quarter: 2012Q4

REPORT INFORMATION
  Report Type: 
  Country: DE (occurrence: DE)
  Receive Date: 20121002
  Receipt Date: 20121002
  Transmission Date: 20130627
  Serious: Yes (Hospitalization)
  Sender: FDA-Public Use
  Company Number: DE-PFIZER INC-2012238804

PATIENT
  Age: 27 Year
  Sex: Male
  Weight: 64 kg

DRUGS (8)
  1. GENOTROPIN [Suspect]
     Dosage: 1.2 mg, 7injectios/week
     Dates: start: 20050323, end: 20070405
  2. TESTOSTERONE [Concomitant]
     Indication: BLOOD LUTEINISING HORMONE DECREASED
     Dosage: UNK
     Dates: start: 20030815
  3. TESTOSTERONE [Concomitant]
     Indication: BLOOD FOLLICLE STIMULATING HORMONE DECREASED
  4. TESTOSTERONE [Concomitant]
     Indication: HYPOGONADISM MALE
  5. SALOFALK ^AVENTIS^ [Concomitant]
     Indication: COLITIS ULCERATIVE
     Dosage: UNK
     Dates: start: 20041006
  6. TESTOSTERONE UNDECANOATE [Concomitant]
     Indication: BLOOD LUTEINISING HORMONE DECREASED
     Dosage: UNK
     Dates: start: 20050927
  7. TESTOSTERONE UNDECANOATE [Concomitant]
     Indication: BLOOD FOLLICLE STIMULATING HORMONE DECREASED
  8. TESTOSTERONE UNDECANOATE [Concomitant]
     Indication: HYPOGONADISM MALE

REACTIONS (1)
  - Ligament injury [Unknown]
